FAERS Safety Report 6442823-3 (Version None)
Quarter: 2009Q4

REPORT INFORMATION
  Report Type: 
  Country: None (occurrence: None)
  Receive Date: 20091117
  Receipt Date: 20091110
  Transmission Date: 20100525
  Serious: Yes (Other)
  Sender: FDA-Public Use
  Company Number: US-RB-024618-09

PATIENT
  Age: 27 Year
  Sex: Male

DRUGS (2)
  1. SUBOXONE [Suspect]
     Indication: DRUG DEPENDENCE
     Route: 060
     Dates: start: 20091029
  2. TRAZODONE HCL [Concomitant]
     Dosage: DOSING DETAILS UNKNOWN
     Route: 065

REACTIONS (1)
  - SYNCOPE [None]
